FAERS Safety Report 4661465-3 (Version None)
Quarter: 2005Q2

REPORT INFORMATION
  Report Type: 
  Country: None (occurrence: None)
  Receive Date: 20050512
  Receipt Date: 20050506
  Transmission Date: 20051028
  Serious: Yes (Other)
  Sender: FDA-Public Use
  Company Number: 004794

PATIENT
  Sex: Female

DRUGS (3)
  1. MEDROXYPROGESTERONE ACETATE [Suspect]
     Dates: start: 19910101, end: 20010301
  2. PROVERA [Suspect]
     Dates: start: 19910101, end: 20010301
  3. PREMARIN [Suspect]
     Dates: start: 19900701, end: 20010301

REACTIONS (1)
  - BREAST CANCER FEMALE [None]
